FAERS Safety Report 7874604-8 (Version None)
Quarter: 2011Q4

REPORT INFORMATION
  Report Type: 
  Country: None (occurrence: None)
  Receive Date: 20111031
  Receipt Date: 20111025
  Transmission Date: 20120403
  Serious: Yes (Other)
  Sender: FDA-Public Use
  Company Number: US-PFIZER INC-2011260140

PATIENT
  Age: 83 Year
  Sex: Female
  Weight: 58.957 kg

DRUGS (2)
  1. CELEBREX [Suspect]
     Indication: PAIN
     Dosage: 200 MG, DAILY
     Dates: end: 20110101
  2. SYNTHROID [Concomitant]
     Indication: THYROID DISORDER
     Dosage: 0.75 MG, DAILY

REACTIONS (4)
  - PHARYNGEAL HYPOAESTHESIA [None]
  - PRURITUS [None]
  - PALMAR ERYTHEMA [None]
  - ERYTHEMA [None]
